FAERS Safety Report 8154581-5 (Version None)
Quarter: 2012Q1

REPORT INFORMATION
  Report Type: 
  Country: None (occurrence: None)
  Receive Date: 20120221
  Receipt Date: 20120214
  Transmission Date: 20120608
  Serious: Yes (Disabling)
  Sender: FDA-Public Use
  Company Number: CA-B.I. PHARMACEUTICALS,INC./RIDGEFIELD-2012-CN-00340CN

PATIENT
  Age: 51 Year
  Sex: Male

DRUGS (7)
  1. ASPIRIN [Concomitant]
     Route: 048
  2. PRADAXA [Suspect]
     Dosage: 300 MG
     Route: 048
  3. AVALIDE [Concomitant]
     Route: 065
  4. TYLENOL W/ CODEINE NO. 3 [Concomitant]
     Route: 048
  5. OXYCODONE HCL AND ACETAMINOPHEN [Concomitant]
     Route: 048
  6. NASONEX [Concomitant]
     Route: 055
  7. SYMBICORT 200 TURBUHALER [Concomitant]
     Route: 055

REACTIONS (1)
  - ARTHRALGIA [None]
